FAERS Safety Report 10215020 (Version 1)
Quarter: 2014Q2

REPORT INFORMATION
  Report Type: Spontaneous
  Country: IT (occurrence: IT)
  Receive Date: 20140603
  Receipt Date: 20140603
  Transmission Date: 20141212
  Serious: Yes (Hospitalization)
  Sender: FDA-Public Use
  Company Number: IT-MYLANLABS-2014S1012284

PATIENT
  Age: 89 Year
  Sex: Female

DRUGS (10)
  1. PAROXETINE HYDROCHLORIDE [Suspect]
     Indication: PRODUCT USED FOR UNKNOWN INDICATION
     Dosage: 20 MG DAILY
     Route: 048
     Dates: start: 20140101, end: 20140408
  2. TALOFEN [Interacting]
     Indication: PSYCHOMOTOR HYPERACTIVITY
     Dosage: 20 GTT DAILY
     Route: 048
     Dates: start: 20140406, end: 20140408
  3. HALCION [Concomitant]
     Indication: PRODUCT USED FOR UNKNOWN INDICATION
     Dosage: 250 MCG TABLET
     Route: 048
     Dates: start: 20140406, end: 20140408
  4. MATRIFEN [Concomitant]
     Indication: PAIN
     Route: 062
     Dates: start: 20120101, end: 20140408
  5. PALEXIA [Concomitant]
     Indication: PAIN
     Dosage: 100 MG TABLET
     Route: 048
     Dates: start: 20140101, end: 20140408
  6. CRESTOR [Concomitant]
     Indication: DYSLIPIDAEMIA
  7. GLIBENCLAMIDE W/METFORMIN HYDROCHLORIDE [Concomitant]
     Indication: DIABETES MELLITUS
     Dosage: 400 MG+2.5 MG TABLET
  8. LASIX [Concomitant]
     Indication: HYPERTENSION
     Route: 048
     Dates: start: 20120501, end: 20140408
  9. APROVEL [Concomitant]
     Indication: HYPERTENSION
     Dates: start: 20120901, end: 20140408
  10. TIKLID [Concomitant]
     Indication: PRODUCT USED FOR UNKNOWN INDICATION
     Dosage: 250 MG TABLET

REACTIONS (5)
  - Drug interaction [Recovered/Resolved]
  - Loss of consciousness [Recovered/Resolved]
  - Muscle contractions involuntary [Recovered/Resolved]
  - Trismus [Recovered/Resolved]
  - Eye movement disorder [Recovered/Resolved]
